FAERS Safety Report 4346579-X (Version None)
Quarter: 2004Q1

REPORT INFORMATION
  Report Type: 
  Country: None (occurrence: None)
  Receive Date: 20040325
  Receipt Date: 20031222
  Transmission Date: 20041129
  Serious: No
  Sender: FDA-Public Use
  Company Number: USA031255307

PATIENT
  Age: 62 Year
  Sex: Female

DRUGS (2)
  1. FORTEO [Suspect]
     Indication: BONE EROSION
     Dosage: 20 UG/DAY
     Dates: start: 20031207, end: 20031212
  2. EVISTA [Suspect]
     Dates: start: 20020101, end: 20020101

REACTIONS (3)
  - MUSCULOSKELETAL DISCOMFORT [None]
  - PAIN IN EXTREMITY [None]
  - TENDERNESS [None]
